FAERS Safety Report 4444913-3 (Version None)
Quarter: 2004Q3

REPORT INFORMATION
  Report Type: 
  Country: None (occurrence: None)
  Receive Date: 20040909
  Receipt Date: 20040702
  Transmission Date: 20050211
  Serious: Yes (Hospitalization, Disabling)
  Sender: FDA-Public Use
  Company Number: DE-GLAXOSMITHKLINE-D0044129A

PATIENT
  Age: 37 Year
  Sex: Female
  Weight: 81 kg

DRUGS (5)
  1. TRIZIVIR [Suspect]
     Indication: HIV INFECTION
     Dosage: 1TAB TWICE PER DAY
     Route: 048
     Dates: start: 20040525, end: 20040805
  2. SEROQUEL [Concomitant]
     Dosage: 300MG TWICE PER DAY
     Route: 048
     Dates: start: 20040525, end: 20040805
  3. LORAZEPAM [Concomitant]
     Dosage: 2MG UNKNOWN
     Route: 048
     Dates: start: 20040527, end: 20040621
  4. ZOPICLON [Concomitant]
     Dosage: 7.5MG UNKNOWN
     Route: 048
     Dates: start: 20040604, end: 20040622
  5. IODID [Concomitant]
     Dosage: 1TAB UNKNOWN
     Route: 048
     Dates: start: 20040525, end: 20040805

REACTIONS (2)
  - ANTIDEPRESSANT DRUG LEVEL BELOW THERAPEUTIC [None]
  - DRUG INTERACTION [None]
